FAERS Safety Report 22053026 (Version 1)
Quarter: 2023Q1

REPORT INFORMATION
  Report Type: Spontaneous
  Country: US (occurrence: US)
  Receive Date: 20230302
  Receipt Date: 20230302
  Transmission Date: 20230417
  Serious: No
  Sender: FDA-Public Use
  Company Number: US-ABBVIE-4284382

PATIENT
  Sex: Female

DRUGS (3)
  1. RINVOQ [Suspect]
     Active Substance: UPADACITINIB
     Indication: Axial spondyloarthritis
     Dosage: FORM STRENGTH:15 MILLIGRAM
     Route: 048
     Dates: end: 2023
  2. PREDNISONE [Concomitant]
     Active Substance: PREDNISONE
     Indication: Arthritis
  3. LEXAPRO [Concomitant]
     Active Substance: ESCITALOPRAM OXALATE
     Indication: Product used for unknown indication

REACTIONS (3)
  - Myalgia [Recovered/Resolved]
  - Hot flush [Recovered/Resolved]
  - Muscular weakness [Recovered/Resolved]
